FAERS Safety Report 9518865 (Version 1)
Quarter: 2013Q3

REPORT INFORMATION
  Report Type: Spontaneous
  Country: US (occurrence: None)
  Receive Date: 20130910
  Receipt Date: 20130910
  Transmission Date: 20140515
  Serious: Yes (Hospitalization)
  Sender: FDA-Public Use
  Company Number: None

PATIENT
  Age: 1 Year
  Sex: 0

DRUGS (1)
  1. CEFTIBUTEN (CEDAX) SUSPENSION PERNIX THERAPEUTICS [Suspect]
     Dates: start: 20130517, end: 20130521

REACTIONS (1)
  - Diarrhoea [None]
